FAERS Safety Report 7770303-1 (Version None)
Quarter: 2011Q3

REPORT INFORMATION
  Report Type: 
  Country: None (occurrence: None)
  Receive Date: 20110922
  Receipt Date: 20100818
  Transmission Date: 20111222
  Serious: No
  Sender: FDA-Public Use
  Company Number: US-ASTRAZENECA-2010SE38869

PATIENT
  Sex: Female

DRUGS (6)
  1. XANAX [Concomitant]
  2. SYNTHROID [Concomitant]
  3. WELLBUTRIN [Concomitant]
  4. SEROQUEL [Suspect]
     Indication: INSOMNIA
     Route: 048
  5. SEROQUEL [Suspect]
     Route: 048
     Dates: start: 20090801, end: 20100814
  6. PROZAC [Concomitant]

REACTIONS (6)
  - MIDDLE INSOMNIA [None]
  - WEIGHT INCREASED [None]
  - DRUG INEFFECTIVE FOR UNAPPROVED INDICATION [None]
  - DRUG DOSE OMISSION [None]
  - INSOMNIA [None]
  - INCREASED APPETITE [None]
